FAERS Safety Report 9378655 (Version 2)
Quarter: 2013Q3

REPORT INFORMATION
  Report Type: Report from Study
  Country: FR (occurrence: FR)
  Receive Date: 20130702
  Receipt Date: 20130902
  Transmission Date: 20140515
  Serious: Yes (Death)
  Sender: FDA-Public Use
  Company Number: FR-MERCK-1307FRA000309

PATIENT
  Age: 84 Year
  Sex: Male
  Weight: 92 kg

DRUGS (9)
  1. SITAGLIPTIN PHOSPHATE [Suspect]
     Indication: TYPE 2 DIABETES MELLITUS
     Dosage: 100 MG, QD
     Route: 048
     Dates: start: 20090819, end: 20130128
  2. METFORMIN [Concomitant]
     Indication: TYPE 2 DIABETES MELLITUS
     Dosage: 500 UNK, UNK
     Route: 065
     Dates: start: 20110722, end: 20120203
  3. GLUCOPHAGE [Concomitant]
     Indication: TYPE 2 DIABETES MELLITUS
     Dosage: 500 MG, TID
     Dates: start: 20090819, end: 20110722
  4. GLUCOPHAGE [Concomitant]
     Dosage: 500 MG, TID
     Dates: start: 20120203, end: 20130128
  5. AMIODARONE [Concomitant]
     Indication: ATRIAL FIBRILLATION
     Dosage: UNK
     Dates: start: 20010912, end: 20130128
  6. FUROSEMIDE [Concomitant]
     Indication: CARDIAC FAILURE
     Dosage: UNK
     Dates: start: 20100820, end: 20100828
  7. SIMVASTATIN [Concomitant]
     Indication: DYSLIPIDAEMIA
     Dosage: UNK
     Dates: start: 20010912, end: 20130128
  8. PREVISCAN [Concomitant]
     Indication: ATRIAL FIBRILLATION
     Dosage: UNK
     Dates: start: 20010912, end: 20130128
  9. COVERSYL (PERINDOPRIL ERBUMINE) [Concomitant]
     Indication: HYPERTENSION
     Dosage: UNK
     Dates: start: 20060303, end: 20130128

REACTIONS (1)
  - Cardiac failure acute [Fatal]
